FAERS Safety Report 4475192-9 (Version None)
Quarter: 2004Q4

REPORT INFORMATION
  Report Type: 
  Country: None (occurrence: None)
  Receive Date: 20041012
  Receipt Date: 20040927
  Transmission Date: 20050328
  Serious: Yes (Other)
  Sender: FDA-Public Use
  Company Number: 2004235273EC

PATIENT
  Age: 86 Year
  Sex: Male

DRUGS (3)
  1. BEXTRA [Suspect]
     Indication: PAIN
     Dosage: 40 MG, BID, ORAL
     Route: 048
  2. PROPOXYPHENE HCL [Concomitant]
  3. CARBOPLATIN [Concomitant]

REACTIONS (1)
  - HENOCH-SCHONLEIN PURPURA [None]
